FAERS Safety Report 23206255 (Version 2)
Quarter: 2024Q1

REPORT INFORMATION
  Report Type: Report from Study
  Country: KZ (occurrence: KZ)
  Receive Date: 20231120
  Receipt Date: 20240119
  Transmission Date: 20240410
  Serious: Yes (Hospitalization)
  Sender: FDA-Public Use
  Company Number: KZ-AMRYT PHARMACEUTICALS DAC-AEGR006764

PATIENT

DRUGS (12)
  1. METRELEPTIN [Suspect]
     Active Substance: METRELEPTIN
     Indication: Familial partial lipodystrophy
     Dosage: 2.5 MILLIGRAM, QD
     Dates: start: 20231013
  2. BISOPROLOL [Concomitant]
     Active Substance: BISOPROLOL\BISOPROLOL FUMARATE
     Indication: Ventricular tachycardia
     Dosage: 2.5 MILLIGRAM, QD
  3. SOTALOL [Concomitant]
     Active Substance: SOTALOL
     Indication: Cerebral infarction
     Dosage: 160 MILLIGRAM
  4. SOTALOL [Concomitant]
     Active Substance: SOTALOL
     Indication: Hypertension
  5. EPLERENONE [Concomitant]
     Active Substance: EPLERENONE
     Indication: Cerebral infarction
     Dosage: 25 MILLIGRAM, QD
  6. EPLERENONE [Concomitant]
     Active Substance: EPLERENONE
     Indication: Hypertension
  7. JARDIANCE [Concomitant]
     Active Substance: EMPAGLIFLOZIN
     Indication: Hypertension
     Dosage: 10 MILLIGRAM, QD
  8. JARDIANCE [Concomitant]
     Active Substance: EMPAGLIFLOZIN
     Indication: Cerebral infarction
  9. LISINOPRIL [Concomitant]
     Active Substance: LISINOPRIL
     Indication: Cerebral infarction
     Dosage: 2.5 MILLIGRAM, QD
  10. LISINOPRIL [Concomitant]
     Active Substance: LISINOPRIL
     Indication: Hypertension
  11. TROMBOPOL [Concomitant]
     Indication: Hypertension
     Dosage: 100 MILLIGRAM, QD
  12. TROMBOPOL [Concomitant]
     Indication: Cerebral infarction

REACTIONS (1)
  - Ischaemic stroke [Recovering/Resolving]

NARRATIVE: CASE EVENT DATE: 20231110
